FAERS Safety Report 11940816 (Version 1)
Quarter: 2016Q1

REPORT INFORMATION
  Report Type: Spontaneous
  Country: US (occurrence: US)
  Receive Date: 20160122
  Receipt Date: 20160122
  Transmission Date: 20160526
  Serious: Yes (Hospitalization)
  Sender: FDA-Public Use
  Company Number: PHHY2016US005880

PATIENT
  Age: 18 Year
  Sex: Male

DRUGS (14)
  1. ONDANSETRON HYDROCHLORIDE. [Suspect]
     Active Substance: ONDANSETRON HYDROCHLORIDE
     Indication: NAUSEA
     Route: 065
  2. IBUPROFEN SANDOZ [Suspect]
     Active Substance: IBUPROFEN
     Indication: ABDOMINAL PAIN LOWER
     Route: 065
  3. IBUPROFEN SANDOZ [Suspect]
     Active Substance: IBUPROFEN
     Indication: ABDOMINAL PAIN LOWER
  4. IBUPROFEN SANDOZ [Suspect]
     Active Substance: IBUPROFEN
     Indication: ABDOMINAL PAIN LOWER
  5. ACETAMINOPHEN. [Suspect]
     Active Substance: ACETAMINOPHEN
     Indication: SCROTAL PAIN
  6. KETOROLAC [Suspect]
     Active Substance: KETOROLAC\KETOROLAC TROMETHAMINE
     Indication: GROIN PAIN
  7. KETOROLAC [Suspect]
     Active Substance: KETOROLAC\KETOROLAC TROMETHAMINE
     Indication: ABDOMINAL PAIN LOWER
     Route: 065
  8. ACETAMINOPHEN. [Suspect]
     Active Substance: ACETAMINOPHEN
     Indication: ABDOMINAL PAIN LOWER
     Route: 065
  9. ACETAMINOPHEN. [Suspect]
     Active Substance: ACETAMINOPHEN
     Indication: GROIN PAIN
  10. ONDANSETRON HYDROCHLORIDE. [Suspect]
     Active Substance: ONDANSETRON HYDROCHLORIDE
     Indication: VOMITING
  11. KETOROLAC [Suspect]
     Active Substance: KETOROLAC\KETOROLAC TROMETHAMINE
     Indication: SCROTAL PAIN
  12. IBUPROFEN SANDOZ [Suspect]
     Active Substance: IBUPROFEN
     Indication: PYREXIA
  13. KETOROLAC [Suspect]
     Active Substance: KETOROLAC\KETOROLAC TROMETHAMINE
     Indication: PYREXIA
  14. ACETAMINOPHEN. [Suspect]
     Active Substance: ACETAMINOPHEN
     Indication: PYREXIA

REACTIONS (6)
  - Nausea [Not Recovered/Not Resolved]
  - Pyrexia [Recovered/Resolved]
  - Condition aggravated [Recovering/Resolving]
  - Groin pain [Recovering/Resolving]
  - Vomiting [Recovered/Resolved]
  - Abdominal pain [Recovering/Resolving]
